FAERS Safety Report 17420421 (Version 1)
Quarter: 2020Q1

REPORT INFORMATION
  Report Type: Report from Study
  Country: US (occurrence: US)
  Receive Date: 20200214
  Receipt Date: 20200214
  Transmission Date: 20200409
  Serious: Yes (Hospitalization, Other)
  Sender: FDA-Public Use
  Company Number: US-ROCHE-1558752

PATIENT
  Age: 66 Year
  Sex: Female
  Weight: 63.1 kg

DRUGS (2)
  1. ERLOTINIB [Suspect]
     Active Substance: ERLOTINIB
     Indication: NON-SMALL CELL LUNG CANCER
     Route: 048
     Dates: start: 20140210, end: 20150318
  2. BEVACIZUMAB. [Suspect]
     Active Substance: BEVACIZUMAB
     Indication: NON-SMALL CELL LUNG CANCER
     Route: 042
     Dates: start: 20140210

REACTIONS (6)
  - Periorbital oedema [Unknown]
  - Herpes zoster [Unknown]
  - Neuralgia [Unknown]
  - Leukocytosis [Unknown]
  - Ophthalmic herpes zoster [Unknown]
  - Rash pustular [Unknown]

NARRATIVE: CASE EVENT DATE: 20150318
